FAERS Safety Report 10278737 (Version 1)
Quarter: 2014Q3

REPORT INFORMATION
  Report Type: Spontaneous
  Country: US (occurrence: US)
  Receive Date: 20140705
  Receipt Date: 20140705
  Transmission Date: 20150326
  Serious: No
  Sender: FDA-Public Use
  Company Number: US-ASTRAZENECA-2014SE48494

PATIENT
  Age: 75 Year
  Sex: Female
  Weight: 81.6 kg

DRUGS (1)
  1. NEXIUM 24HR [Suspect]
     Active Substance: ESOMEPRAZOLE MAGNESIUM
     Indication: DYSPEPSIA
     Route: 048
     Dates: start: 201406

REACTIONS (7)
  - Regurgitation [Unknown]
  - Malaise [Unknown]
  - Intentional product misuse [Unknown]
  - Dyspepsia [Unknown]
  - Dyspnoea [Unknown]
  - Drug ineffective [Unknown]
  - Nausea [Unknown]

NARRATIVE: CASE EVENT DATE: 201406
